FAERS Safety Report 7705929-4 (Version None)
Quarter: 2011Q3

REPORT INFORMATION
  Report Type: 
  Country: None (occurrence: None)
  Receive Date: 20110824
  Receipt Date: 20110822
  Transmission Date: 20111222
  Serious: Yes (Other)
  Sender: FDA-Public Use
  Company Number: US-PFIZER INC-2011194019

PATIENT
  Sex: Female

DRUGS (9)
  1. LOVAZA [Concomitant]
     Dosage: UNK
  2. MIRALAX [Concomitant]
     Dosage: UNK
  3. BUMEX [Concomitant]
     Dosage: UNK
  4. POTASSIUM [Concomitant]
     Dosage: UNK
  5. ACETYLSALICYLIC ACID [Concomitant]
     Dosage: 81 MG, UNK
  6. ESTRING [Suspect]
     Indication: VULVOVAGINAL DRYNESS
     Dosage: 2 MG, EVERY 3 MONTHS
     Route: 067
     Dates: start: 19990101
  7. LISINOPRIL [Concomitant]
     Dosage: UNK
  8. CALCIUM CARBONATE [Concomitant]
     Dosage: UNK
  9. PRADAXA [Concomitant]
     Dosage: UNK, 2X/DAY

REACTIONS (1)
  - ATRIAL FIBRILLATION [None]
